FAERS Safety Report 21760566 (Version 1)
Quarter: 2022Q4

REPORT INFORMATION
  Report Type: Spontaneous
  Country: US (occurrence: None)
  Receive Date: 20221220
  Receipt Date: 20221220
  Transmission Date: 20230113
  Serious: Yes (Hospitalization, Disabling, Other)
  Sender: FDA-Public Use
  Company Number: None

PATIENT
  Age: 67 Year
  Sex: Male
  Weight: 112.5 kg

DRUGS (4)
  1. DILANTIN [Suspect]
     Active Substance: PHENYTOIN
     Indication: Epilepsy
  2. DILANTIN [Concomitant]
     Active Substance: PHENYTOIN
  3. KEPPRA [Concomitant]
     Active Substance: LEVETIRACETAM
  4. One a- day multivitamin [Concomitant]

REACTIONS (7)
  - Manufacturing issue [None]
  - Product quality issue [None]
  - Blood pressure decreased [None]
  - Cardiac disorder [None]
  - Presyncope [None]
  - Job dissatisfaction [None]
  - Impaired driving ability [None]

NARRATIVE: CASE EVENT DATE: 20060102
